FAERS Safety Report 7726000-1 (Version None)
Quarter: 2011Q3

REPORT INFORMATION
  Report Type: 
  Country: None (occurrence: None)
  Receive Date: 20110831
  Receipt Date: 20110819
  Transmission Date: 20111222
  Serious: Yes (Hospitalization)
  Sender: FDA-Public Use
  Company Number: 2011AP001584

PATIENT
  Age: 44 Year
  Sex: Male

DRUGS (5)
  1. CODEINE PHOSPHATE (CODEINE PHOSPHATE) [Concomitant]
  2. ACETAMINOPHEN [Concomitant]
  3. ATORVASTATIN [Concomitant]
  4. OMEPRAZOLE [Concomitant]
  5. SERTRALINE HYDROCHLORIDE [Suspect]
     Indication: DEPRESSION

REACTIONS (2)
  - HYPERLIPIDAEMIA [None]
  - PANCREATITIS [None]
